FAERS Safety Report 4423304-5 (Version None)
Quarter: 2004Q3

REPORT INFORMATION
  Report Type: 
  Country: None (occurrence: None)
  Receive Date: 20040811
  Receipt Date: 20040628
  Transmission Date: 20050211
  Serious: Yes (Hospitalization)
  Sender: FDA-Public Use
  Company Number: SE-GLAXOSMITHKLINE-B0337800A

PATIENT
  Age: 21 Year
  Sex: Male

DRUGS (1)
  1. ZINACEF [Suspect]
     Dosage: 1.5G PER DAY
     Route: 042
     Dates: start: 20040415, end: 20040415

REACTIONS (5)
  - ANAPHYLACTIC REACTION [None]
  - ANGIONEUROTIC OEDEMA [None]
  - CHILLS [None]
  - DYSPNOEA [None]
  - URTICARIA GENERALISED [None]
